FAERS Safety Report 9025015 (Version 1)
Quarter: 2013Q1

REPORT INFORMATION
  Report Type: Spontaneous
  Country: DE (occurrence: DE)
  Receive Date: 20130121
  Receipt Date: 20130121
  Transmission Date: 20140127
  Serious: Yes (Other)
  Sender: FDA-Public Use
  Company Number: PHHY2013DE003674

PATIENT
  Sex: Male

DRUGS (4)
  1. VOLTAREN [Suspect]
     Indication: GAIT DISTURBANCE
     Dosage: 2 TO 4 TABLETS PER WEEK
     Route: 048
  2. DICLOFENAC [Suspect]
     Indication: GAIT DISTURBANCE
     Dosage: 2 TO 4 TABLETS PER WEEK
     Route: 048
  3. IBUPROFEN [Suspect]
     Indication: GAIT DISTURBANCE
     Dosage: 2 TO 4 TABLETS PER WEEK
     Route: 048
  4. VIOXX [Suspect]
     Indication: GAIT DISTURBANCE
     Dosage: 2 TO 4 TABLETS PER WEEK
     Route: 048

REACTIONS (6)
  - Feeling abnormal [Recovering/Resolving]
  - General physical health deterioration [Recovering/Resolving]
  - Tachycardia [Recovering/Resolving]
  - Dyspnoea [Recovering/Resolving]
  - Tinnitus [Recovering/Resolving]
  - Abdominal pain [Recovering/Resolving]
